FAERS Safety Report 8523953 (Version 2)
Quarter: 2013Q3

REPORT INFORMATION
  Report Type: Report from Study
  Country: MX (occurrence: MX)
  Receive Date: 20120420
  Receipt Date: 20130716
  Transmission Date: 20140515
  Serious: Yes (Hospitalization)
  Sender: FDA-Public Use
  Company Number: PHHY2012MX032668

PATIENT
  Age: 71 Year
  Sex: Female
  Weight: 80 kg

DRUGS (6)
  1. RASILEZ [Suspect]
     Indication: HYPERTENSION
     Dosage: 150 MG, DAILY
     Dates: start: 2011
  2. EXFORGE [Suspect]
     Dosage: 1 UKN, DAILY
     Dates: start: 201202
  3. EXFORGE [Suspect]
     Dosage: 2 UKN, DAILY
     Dates: start: 201202
  4. VIVITAR [Concomitant]
     Indication: CARDIAC FAILURE
     Dosage: UNK UKN, UNK
     Dates: start: 198204
  5. COUMARIN [Concomitant]
     Dosage: UNK UKN, UNK
  6. ANALGESICS [Concomitant]
     Indication: TOOTHACHE
     Dosage: UNK UKN, WHEN SHE HAD TOOTH PAIN

REACTIONS (8)
  - Infarction [Unknown]
  - Fall [Unknown]
  - Injury [Unknown]
  - Cerumen impaction [Unknown]
  - Dysphonia [Unknown]
  - Hypoacusis [Unknown]
  - Tinnitus [Unknown]
  - Cough [Unknown]
